FAERS Safety Report 12777854 (Version 1)
Quarter: 2016Q3

REPORT INFORMATION
  Report Type: Spontaneous
  Country: US (occurrence: US)
  Receive Date: 20160924
  Receipt Date: 20160924
  Transmission Date: 20161109
  Serious: No
  Sender: FDA-Public Use
  Company Number: US-JAZZ-2016-US-010743

PATIENT
  Sex: Female

DRUGS (44)
  1. LORZONE [Concomitant]
     Active Substance: CHLORZOXAZONE
  2. CHLORZOXAZONE. [Concomitant]
     Active Substance: CHLORZOXAZONE
  3. NUCYNTA ER [Concomitant]
     Active Substance: TAPENTADOL HYDROCHLORIDE
  4. SULFACETAMIDE SODIUM. [Concomitant]
     Active Substance: SULFACETAMIDE SODIUM
  5. TRIAMCINOLONE [Concomitant]
     Active Substance: TRIAMCINOLONE
  6. DOXYCYCLINE HYCLATE. [Concomitant]
     Active Substance: DOXYCYCLINE HYCLATE
  7. TRIAMCINOLONE ACETONIDE. [Concomitant]
     Active Substance: TRIAMCINOLONE ACETONIDE
  8. SOMA [Concomitant]
     Active Substance: CARISOPRODOL
  9. KLONOPIN [Concomitant]
     Active Substance: CLONAZEPAM
  10. XYREM [Suspect]
     Active Substance: SODIUM OXYBATE
     Dosage: DOSE ADJUSTMENTS
     Route: 048
     Dates: start: 201502, end: 201512
  11. GEODON [Concomitant]
     Active Substance: ZIPRASIDONE HYDROCHLORIDE\ZIPRASIDONE MESYLATE
  12. ORTHO TRI CYCLEN LO [Concomitant]
     Active Substance: ETHINYL ESTRADIOL\NORGESTIMATE
  13. MUPIROCIN. [Concomitant]
     Active Substance: MUPIROCIN
  14. LIDOCAINE. [Concomitant]
     Active Substance: LIDOCAINE
  15. EPIDERM [Concomitant]
     Active Substance: BETAMETHASONE VALERATE\CLIOQUINOL\GENTAMICIN SULFATE\TOLNAFTATE
  16. WELLBUTRIN XL [Concomitant]
     Active Substance: BUPROPION HYDROCHLORIDE
  17. TRETINOIN. [Concomitant]
     Active Substance: TRETINOIN
  18. TIGAN [Concomitant]
     Active Substance: TRIMETHOBENZAMIDE HYDROCHLORIDE
  19. XYREM [Suspect]
     Active Substance: SODIUM OXYBATE
     Indication: NARCOLEPSY
     Dosage: 2.25 G, BID
     Route: 048
     Dates: start: 201501, end: 201502
  20. PENNSAID [Concomitant]
     Active Substance: DICLOFENAC SODIUM
  21. CHROMIUM PICOLINATE [Concomitant]
     Active Substance: CHROMIUM PICOLINATE
  22. PRILOSEC [Concomitant]
     Active Substance: OMEPRAZOLE MAGNESIUM
  23. XYREM [Suspect]
     Active Substance: SODIUM OXYBATE
     Dosage: 4.5 G, BID
     Route: 048
     Dates: start: 201512
  24. GELNIQUE [Concomitant]
     Active Substance: OXYBUTYNIN
  25. ADDERALL XR [Concomitant]
     Active Substance: AMPHETAMINE ASPARTATE\AMPHETAMINE SULFATE\DEXTROAMPHETAMINE SACCHARATE\DEXTROAMPHETAMINE SULFATE
  26. CAMRESE LO [Concomitant]
  27. MULTIVITAMIN [Concomitant]
     Active Substance: VITAMINS
  28. HYPERCARE [Concomitant]
     Active Substance: ALCOHOL\ALUMINUM CHLORIDE
  29. ADDERALL [Concomitant]
     Active Substance: AMPHETAMINE ASPARTATE\AMPHETAMINE SULFATE\DEXTROAMPHETAMINE SACCHARATE\DEXTROAMPHETAMINE SULFATE
  30. FOLIC ACID. [Concomitant]
     Active Substance: FOLIC ACID
  31. NICOTINE. [Concomitant]
     Active Substance: NICOTINE
  32. NUCYNTA [Concomitant]
     Active Substance: TAPENTADOL HYDROCHLORIDE
  33. KRILL OIL [Concomitant]
     Active Substance: DIETARY SUPPLEMENT
  34. SODIUM SULFACETAMIDE [Concomitant]
     Active Substance: SULFACETAMIDE SODIUM
  35. SAVELLA [Concomitant]
     Active Substance: MILNACIPRAN HYDROCHLORIDE
  36. DOXYCYCLINE HYCLATE DR [Concomitant]
     Active Substance: DOXYCYCLINE HYCLATE
  37. GLUTAMINE [Concomitant]
     Active Substance: GLUTAMINE
  38. 5 HTP [Concomitant]
  39. QUARTETTE [Concomitant]
     Active Substance: ETHINYL ESTRADIOL\LEVONORGESTREL
  40. ZYPREXA ZYDIS [Concomitant]
     Active Substance: OLANZAPINE
  41. ACANYA [Concomitant]
     Active Substance: BENZOYL PEROXIDE\CLINDAMYCIN PHOSPHATE
  42. FLEXERIL [Concomitant]
     Active Substance: CYCLOBENZAPRINE HYDROCHLORIDE
  43. L-GLUTAMINE [Concomitant]
  44. FETZIMA [Concomitant]
     Active Substance: LEVOMILNACIPRAN HYDROCHLORIDE

REACTIONS (2)
  - Condition aggravated [Not Recovered/Not Resolved]
  - Somnolence [Not Recovered/Not Resolved]
